FAERS Safety Report 9444408 (Version 1)
Quarter: 2013Q3

REPORT INFORMATION
  Report Type: Spontaneous
  Country: US (occurrence: None)
  Receive Date: 20130805
  Receipt Date: 20130805
  Transmission Date: 20140515
  Serious: Yes (Death)
  Sender: FDA-Public Use
  Company Number: UTC-035866

PATIENT
  Age: 92 Year
  Sex: Male
  Weight: 68.18 kg

DRUGS (1)
  1. TYVASO [Suspect]
     Indication: PULMONARY ARTERIAL HYPERTENSION
     Dosage: 18 TO 72 MICROGRAMS ( 4 IN 1 D) INHALATION
     Dates: start: 20091116

REACTIONS (1)
  - Death [None]
